FAERS Safety Report 19032666 (Version 1)
Quarter: 2021Q1

REPORT INFORMATION
  Report Type: Spontaneous
  Country: CA (occurrence: CA)
  Receive Date: 20210319
  Receipt Date: 20210319
  Transmission Date: 20210420
  Serious: Yes (Other)
  Sender: FDA-Public Use
  Company Number: CA-ASTRAZENECA-2021A148142

PATIENT
  Age: 62 Year
  Sex: Female

DRUGS (6)
  1. PREDNISONE. [Concomitant]
     Active Substance: PREDNISONE
     Route: 048
  2. DURVALUMAB. [Suspect]
     Active Substance: DURVALUMAB
     Indication: METASTATIC SQUAMOUS CELL CARCINOMA
     Route: 042
  3. CLOBETASOL [Concomitant]
     Active Substance: CLOBETASOL
     Route: 065
  4. PREDNISONE. [Concomitant]
     Active Substance: PREDNISONE
     Route: 048
  5. CLINDAMYCIN. [Concomitant]
     Active Substance: CLINDAMYCIN
     Route: 061
  6. DURVALUMAB. [Suspect]
     Active Substance: DURVALUMAB
     Indication: METASTATIC SQUAMOUS CELL CARCINOMA
     Dosage: EVERY 4 WEEKS FOR THE LAST 2 YEARS
     Route: 042

REACTIONS (3)
  - Hypothyroidism [Unknown]
  - Lichenoid keratosis [Recovered/Resolved]
  - Dermatitis bullous [Recovered/Resolved]
